FAERS Safety Report 10687555 (Version 1)
Quarter: 2014Q4

REPORT INFORMATION
  Report Type: Spontaneous
  Country: US (occurrence: None)
  Receive Date: 20141231
  Receipt Date: 20141231
  Transmission Date: 20150529
  Serious: Yes (Other)
  Sender: FDA-Public Use
  Company Number: None

PATIENT
  Age: 43 Year
  Sex: Female
  Weight: 67.13 kg

DRUGS (3)
  1. LEVAQUIN [Suspect]
     Active Substance: LEVOFLOXACIN
     Indication: OTITIS MEDIA
     Dosage: 1  QD  ORAL
     Route: 048
     Dates: start: 20141116, end: 20141122
  2. PHENERGAN [Concomitant]
     Active Substance: PROMETHAZINE HYDROCHLORIDE
  3. MECLIZINE [Concomitant]
     Active Substance: MECLIZINE\MECLIZINE HYDROCHLORIDE

REACTIONS (13)
  - Anxiety [None]
  - Fear [None]
  - Hallucination [None]
  - Skin exfoliation [None]
  - Decreased appetite [None]
  - Aggression [None]
  - Decreased interest [None]
  - Dry mouth [None]
  - Unevaluable event [None]
  - Pain in extremity [None]
  - Insomnia [None]
  - Weight decreased [None]
  - Speech disorder [None]

NARRATIVE: CASE EVENT DATE: 20141123
